FAERS Safety Report 4697720-0 (Version None)
Quarter: 2005Q1

REPORT INFORMATION
  Report Type: 
  Country: None (occurrence: None)
  Receive Date: 20050121
  Receipt Date: 20050121
  Transmission Date: 20050727
  Serious: Yes (Hospitalization)
  Sender: FDA-Public Use
  Company Number: None

PATIENT
  Age: 57 Year
  Sex: Male
  Weight: 104.2 kg

DRUGS (1)
  1. BUPIVACAINE [Suspect]
     Indication: SPINAL ANAESTHESIA
     Dosage: 12 MG INTRATHECAL MG BETWEEN L3L4
     Route: 037
     Dates: start: 20050106

REACTIONS (2)
  - DYSURIA [None]
  - POST PROCEDURAL COMPLICATION [None]
